FAERS Safety Report 8978168 (Version 1)
Quarter: 2012Q4

REPORT INFORMATION
  Report Type: 
  Country: GB (occurrence: GB)
  Receive Date: 20121220
  Receipt Date: 20121220
  Transmission Date: 20130627
  Serious: Yes (Other)
  Sender: FDA-Public Use
  Company Number: GB-ARROW-2012-18232

PATIENT
  Age: 78 Year
  Sex: Female

DRUGS (3)
  1. ALENDRONATE [Suspect]
     Indication: PRODUCT USED FOR UNKNOWN INDICATION
     Dosage: 70mg per week
     Route: 048
  2. CALCIUM [Concomitant]
     Indication: PRODUCT USED FOR UNKNOWN INDICATION
     Dosage: 1 per day
     Route: 065
  3. FOSTAIR [Concomitant]
     Indication: COUGH
     Dosage: unk

REACTIONS (5)
  - Foreign body [Unknown]
  - Cough [Not Recovered/Not Resolved]
  - Condition aggravated [Unknown]
  - Dysphagia [Not Recovered/Not Resolved]
  - Asthma [Unknown]
